FAERS Safety Report 25823679 (Version 2)
Quarter: 2025Q3

REPORT INFORMATION
  Report Type: Spontaneous
  Country: EU (occurrence: EU)
  Receive Date: 20250919
  Receipt Date: 20250930
  Transmission Date: 20251021
  Serious: Yes (Other)
  Sender: INSUD PHARMA
  Company Number: EU-EXELTIS PHARMACEUTICAL HOLDING, S.L.-2509IT07390

PATIENT
  Age: 47 Year
  Sex: Female

DRUGS (4)
  1. ESTRADIOL [Suspect]
     Active Substance: ESTRADIOL
     Indication: Illness
     Dosage: 2 DOSAGE FORM, WEEKLY
     Route: 062
     Dates: start: 202508
  2. VITAMINS NOS [Concomitant]
     Active Substance: VITAMINS
     Indication: Product used for unknown indication
  3. MAGNESIUM [Concomitant]
     Active Substance: MAGNESIUM
     Indication: Product used for unknown indication
  4. VITAMIN D NOS [Concomitant]
     Active Substance: CHOLECALCIFEROL\ERGOCALCIFEROL
     Indication: Bone demineralisation

REACTIONS (11)
  - Blood pressure increased [Unknown]
  - Heart rate increased [Unknown]
  - Hyperhidrosis [Unknown]
  - Anxiety [Unknown]
  - Nausea [Unknown]
  - Tremor [Unknown]
  - Hypertension [Unknown]
  - Arrhythmia [Unknown]
  - Suspected counterfeit product [Unknown]
  - Chest discomfort [Unknown]
  - Palpitations [Unknown]
